FAERS Safety Report 5194717-1 (Version None)
Quarter: 2006Q4

REPORT INFORMATION
  Report Type: 
  Country: None (occurrence: None)
  Receive Date: 20061229
  Receipt Date: 20061220
  Transmission Date: 20070319
  Serious: Yes (Disabling)
  Sender: FDA-Public Use
  Company Number: PHBS2006IT19786

PATIENT
  Age: 67 Year
  Sex: Female

DRUGS (5)
  1. ZOMETA [Suspect]
     Indication: MULTIPLE MYELOMA
     Dosage: 4 MG, EVERY 1 MONTH
     Route: 042
     Dates: start: 20040101
  2. THALIDOMIDE [Concomitant]
     Route: 065
  3. SOLDESAM [Concomitant]
     Route: 065
  4. LANOXIN [Concomitant]
     Route: 065
  5. ENAPREN [Concomitant]
     Route: 065

REACTIONS (1)
  - OSTEONECROSIS [None]
